FAERS Safety Report 9046568 (Version 1)
Quarter: 2013Q1

REPORT INFORMATION
  Report Type: Spontaneous
  Country: US (occurrence: None)
  Receive Date: 20130128
  Receipt Date: 20130128
  Transmission Date: 20140127
  Serious: Yes (Other)
  Sender: FDA-Public Use
  Company Number: None

PATIENT
  Age: 60 Year
  Sex: Female
  Weight: 64.41 kg

DRUGS (1)
  1. CYMBALTA, 30 MG LILLY CARES [Suspect]

REACTIONS (6)
  - Dry skin [None]
  - Skin wrinkling [None]
  - Breast pain [None]
  - Nipple pain [None]
  - Memory impairment [None]
  - Feeling abnormal [None]
